FAERS Safety Report 5315613-2 (Version None)
Quarter: 2007Q2

REPORT INFORMATION
  Report Type: 
  Country: None (occurrence: None)
  Receive Date: 20070503
  Receipt Date: 20070424
  Transmission Date: 20071010
  Serious: Yes (Death, Other)
  Sender: FDA-Public Use
  Company Number: GB-JNJFOC-20070405389

PATIENT
  Sex: Female
  Weight: 60 kg

DRUGS (3)
  1. REMICADE [Suspect]
     Indication: RHEUMATOID ARTHRITIS
     Route: 042
  2. ALCLOFENAC [Concomitant]
  3. FOLIC ACID [Concomitant]

REACTIONS (2)
  - MYOCARDIAL ISCHAEMIA [None]
  - PULMONARY EMBOLISM [None]
